FAERS Safety Report 9725049 (Version 2)
Quarter: 2013Q4

REPORT INFORMATION
  Report Type: Spontaneous
  Country: US (occurrence: US)
  Receive Date: 20131203
  Receipt Date: 20131216
  Transmission Date: 20140711
  Serious: Yes (Hospitalization)
  Sender: FDA-Public Use
  Company Number: US-BIOGENIDEC-2013BI113380

PATIENT
  Age: 61 Year
  Sex: Female

DRUGS (17)
  1. TYSABRI [Suspect]
     Indication: MULTIPLE SCLEROSIS
     Route: 042
     Dates: start: 20080506, end: 20090528
  2. TYSABRI [Suspect]
     Indication: MULTIPLE SCLEROSIS
     Route: 042
     Dates: start: 20100205, end: 20131104
  3. TYSABRI [Suspect]
     Indication: MULTIPLE SCLEROSIS
     Route: 042
  4. AVONEX [Concomitant]
     Indication: MULTIPLE SCLEROSIS
     Route: 030
     Dates: start: 19970101
  5. BACLOFEN PUMP [Concomitant]
  6. LOVENOX [Concomitant]
  7. DYAZIDE [Concomitant]
  8. FOSAMAX [Concomitant]
  9. NITROFURANTOIN [Concomitant]
  10. MICRO K-2 [Concomitant]
  11. MIRAPEX [Concomitant]
  12. LASIX [Concomitant]
  13. COUMADIN [Concomitant]
  14. MIRALAX [Concomitant]
  15. VITAMIN B [Concomitant]
  16. VITAMIN C [Concomitant]
  17. VITAMIN D [Concomitant]

REACTIONS (2)
  - Urinary tract infection [Unknown]
  - Uhthoff^s phenomenon [Unknown]
